FAERS Safety Report 18922554 (Version 1)
Quarter: 2021Q1

REPORT INFORMATION
  Report Type: Spontaneous
  Country: US (occurrence: US)
  Receive Date: 20210222
  Receipt Date: 20210222
  Transmission Date: 20210420
  Serious: No
  Sender: FDA-Public Use
  Company Number: None

PATIENT
  Age: 28 Year
  Weight: 94.5 kg

DRUGS (3)
  1. ETONOGESTREL / ETHINYL ESTRADIOL VAGINAL RING [Suspect]
     Active Substance: ETHINYL ESTRADIOL\ETONOGESTREL
     Indication: CONTRACEPTION
     Dosage: ?          QUANTITY:1 RING;OTHER FREQUENCY:INTERNAL FOR 3 WKS;?
     Route: 067
  2. LEXAPRO [Concomitant]
     Active Substance: ESCITALOPRAM OXALATE
  3. NUVARING [Concomitant]
     Active Substance: ETHINYL ESTRADIOL\ETONOGESTREL

REACTIONS (6)
  - Inflammation [None]
  - Product substitution issue [None]
  - Abdominal distension [None]
  - Vulvovaginal pruritus [None]
  - Vulvovaginal discomfort [None]
  - Vaginal discharge [None]

NARRATIVE: CASE EVENT DATE: 20210121
